FAERS Safety Report 7570586-7 (Version None)
Quarter: 2011Q2

REPORT INFORMATION
  Report Type: 
  Country: None (occurrence: None)
  Receive Date: 20110624
  Receipt Date: 20110510
  Transmission Date: 20111010
  Serious: No
  Sender: FDA-Public Use
  Company Number: US-ALLERGAN-1105047US

PATIENT
  Age: 70 Year
  Sex: Female

DRUGS (1)
  1. LATISSE [Suspect]
     Indication: GROWTH OF EYELASHES
     Dosage: 1 GTT, QHS
     Dates: start: 20110125, end: 20110501

REACTIONS (3)
  - APPLICATION SITE PAIN [None]
  - DRUG INEFFECTIVE [None]
  - SKIN HYPERPIGMENTATION [None]
